FAERS Safety Report 5713845-2 (Version None)
Quarter: 2008Q2

REPORT INFORMATION
  Report Type: 
  Country: None (occurrence: None)
  Receive Date: 20080421
  Receipt Date: 20080410
  Transmission Date: 20081010
  Serious: Yes (Death, Hospitalization)
  Sender: FDA-Public Use
  Company Number: 100#08#2008-02140

PATIENT
  Age: 38 Year
  Sex: Male

DRUGS (5)
  1. RISPERDAL [Suspect]
     Indication: SCHIZOPHRENIA
     Dosage: 3 MG; 100 MG/15 DAYS
  2. LITHIUM CARBONATE [Suspect]
     Indication: SCHIZOPHRENIA
     Dosage: 800 MG
  3. OLANZAPINE [Suspect]
     Indication: SCHIZOPHRENIA
     Dosage: 10 MG
  4. TOPIRAMATE [Suspect]
     Dosage: 600 MG
  5. BENZODIAZEPINES (BENZODIAZEPINES) [Concomitant]

REACTIONS (13)
  - ATELECTASIS [None]
  - COMA [None]
  - CONSCIOUSNESS FLUCTUATING [None]
  - HEAT STROKE [None]
  - LUNG INFECTION [None]
  - NEUROLEPTIC MALIGNANT SYNDROME [None]
  - NO THERAPEUTIC RESPONSE [None]
  - PARAPARESIS [None]
  - PERIPHERAL SENSORY NEUROPATHY [None]
  - PLATELET COUNT DECREASED [None]
  - PSYCHOTIC DISORDER [None]
  - SPEECH DISORDER [None]
  - TOBACCO INTERACTION [None]
